FAERS Safety Report 9246704 (Version 2)
Quarter: 2013Q2

REPORT INFORMATION
  Report Type: Spontaneous
  Country: IT (occurrence: IT)
  Receive Date: 20130422
  Receipt Date: 20130424
  Transmission Date: 20140414
  Serious: Yes (Hospitalization)
  Sender: FDA-Public Use
  Company Number: PHHY2013IT038628

PATIENT
  Age: 51 Year
  Sex: Female

DRUGS (3)
  1. DICLOFENAC [Suspect]
     Indication: PAIN
     Dosage: 1 DF, (1 POSOLOGIC UNIT), DAILY
     Route: 048
     Dates: start: 20130128, end: 20130214
  2. LANTUS [Concomitant]
     Dosage: UNK UKN, UNK
  3. RANITIDINA [Concomitant]
     Dosage: UNK UKN, UNK

REACTIONS (2)
  - Hepatic lesion [Unknown]
  - Abdominal pain upper [Unknown]
